FAERS Safety Report 25989885 (Version 2)
Quarter: 2025Q4

REPORT INFORMATION
  Report Type: Spontaneous
  Country: JP (occurrence: JP)
  Receive Date: 20251103
  Receipt Date: 20251119
  Transmission Date: 20260118
  Serious: Yes (Hospitalization, Disabling, Other)
  Sender: SANOFI AVENTIS
  Company Number: JP-DialogSolutions-SAAVPROD-PI835463-C1

PATIENT
  Age: 64 Year
  Sex: Male

DRUGS (6)
  1. DUPILUMAB [Suspect]
     Active Substance: DUPILUMAB
     Indication: Asthma
     Dosage: UNK
     Route: 065
  2. DUPILUMAB [Suspect]
     Active Substance: DUPILUMAB
     Indication: Chronic rhinosinusitis with nasal polyps
  3. CORTICOSTEROID NOS [Concomitant]
     Active Substance: CORTICOSTEROID NOS
     Indication: Asthma
     Dosage: UNK, HIGH-DOSE
     Route: 055
  4. MEPOLIZUMAB [Concomitant]
     Active Substance: MEPOLIZUMAB
     Indication: Asthma
     Dosage: UNK
     Route: 065
  5. MEPOLIZUMAB [Concomitant]
     Active Substance: MEPOLIZUMAB
     Indication: Chronic rhinosinusitis with nasal polyps
     Dosage: 100 MG, Q4W
     Route: 065
  6. MEPOLIZUMAB [Concomitant]
     Active Substance: MEPOLIZUMAB
     Indication: Eosinophilic granulomatosis with polyangiitis

REACTIONS (9)
  - Retinal artery occlusion [Not Recovered/Not Resolved]
  - Sensory disturbance [Recovering/Resolving]
  - Visual field defect [Not Recovered/Not Resolved]
  - Retinal depigmentation [Not Recovered/Not Resolved]
  - Retinal thickening [Not Recovered/Not Resolved]
  - Retinal oedema [Not Recovered/Not Resolved]
  - Eosinophilic granulomatosis with polyangiitis [Recovered/Resolved]
  - Neuropathy peripheral [Recovered/Resolved]
  - Tissue infiltration [Recovered/Resolved]
